FAERS Safety Report 15550523 (Version 2)
Quarter: 2018Q4

REPORT INFORMATION
  Report Type: Report from Study
  Country: CA (occurrence: CA)
  Receive Date: 20181025
  Receipt Date: 20181227
  Transmission Date: 20190205
  Serious: Yes (Other)
  Sender: FDA-Public Use
  Company Number: CA-JNJFOC-20181030660

PATIENT
  Age: 37 Year
  Sex: Male

DRUGS (1)
  1. REMICADE [Suspect]
     Active Substance: INFLIXIMAB
     Indication: PYODERMA GANGRENOSUM
     Dosage: STRENGTH = 600 MG
     Route: 042
     Dates: start: 20150529

REACTIONS (1)
  - Pyoderma gangrenosum [Recovering/Resolving]

NARRATIVE: CASE EVENT DATE: 20180928
